FAERS Safety Report 6656448-8 (Version None)
Quarter: 2010Q1

REPORT INFORMATION
  Report Type: 
  Country: None (occurrence: None)
  Receive Date: 20100329
  Receipt Date: 20100315
  Transmission Date: 20100710
  Serious: Yes (Other)
  Sender: FDA-Public Use
  Company Number: US-MYLANLABS-2010S1004326

PATIENT
  Age: 44 Year
  Sex: Female

DRUGS (19)
  1. DULOXETINE HYDROCHLORIDE [Suspect]
  2. LITHIUM [Suspect]
  3. QUETIAPINE [Suspect]
  4. FENTANYL [Suspect]
     Indication: INDUCTION OF ANAESTHESIA
     Route: 042
  5. FENTANYL [Suspect]
     Route: 042
  6. ONDANSETRON [Suspect]
     Indication: PROPHYLAXIS OF NAUSEA AND VOMITING
     Route: 042
  7. CLONAZEPAM [Concomitant]
  8. LAMOTRIGINE [Concomitant]
  9. TOPIRAMATE [Concomitant]
  10. MIDAZOLAM HCL [Concomitant]
     Route: 042
  11. PROPOFOL [Concomitant]
     Indication: INDUCTION OF ANAESTHESIA
  12. ROCURONIUM BROMIDE [Concomitant]
     Indication: INDUCTION OF ANAESTHESIA
  13. DESFLURANE [Concomitant]
     Indication: MAINTENANCE OF ANAESTHESIA
  14. ROCURONIUM BROMIDE [Concomitant]
     Indication: MAINTENANCE OF ANAESTHESIA
     Route: 040
  15. HYDROMORPHONE HCL [Concomitant]
     Dosage: DURING THE REMAINING 3 HOURS OF THE OPERATION
     Route: 042
  16. RINGER LACTATE /01303701/ [Concomitant]
     Route: 042
  17. HEXTEND [Concomitant]
     Route: 042
  18. NEOSTIGMINE [Concomitant]
     Indication: NEUROMUSCULAR BLOCKADE REVERSAL
     Route: 042
  19. GLYCOPYRROLATE [Concomitant]
     Indication: NEUROMUSCULAR BLOCKADE REVERSAL
     Route: 042

REACTIONS (1)
  - SEROTONIN SYNDROME [None]
